FAERS Safety Report 11011029 (Version 1)
Quarter: 2015Q2

REPORT INFORMATION
  Report Type: Spontaneous
  Country: US (occurrence: US)
  Receive Date: 20150410
  Receipt Date: 20150410
  Transmission Date: 20150821
  Serious: No
  Sender: FDA-Public Use
  Company Number: US-BAYER-2015-083981

PATIENT
  Sex: Female

DRUGS (2)
  1. ALEVE PM [Suspect]
     Active Substance: DIPHENHYDRAMINE HYDROCHLORIDE\NAPROXEN SODIUM
     Dosage: UNK
  2. ALKA-SELTZER FRUIT CHEWS [Suspect]
     Active Substance: CALCIUM CARBONATE
     Indication: NASOPHARYNGITIS
     Dosage: UNK

REACTIONS (1)
  - Therapeutic response unexpected [None]
